FAERS Safety Report 10450378 (Version 1)
Quarter: 2014Q3

REPORT INFORMATION
  Report Type: Spontaneous
  Country: CA (occurrence: CA)
  Receive Date: 20140912
  Receipt Date: 20140912
  Transmission Date: 20150326
  Serious: Yes (Life-Threatening, Hospitalization, Other)
  Sender: FDA-Public Use
  Company Number: CA-ASTRAZENECA-2014SE66782

PATIENT

DRUGS (2)
  1. OFIRMEV [Suspect]
     Active Substance: ACETAMINOPHEN
     Route: 042
  2. NAROPIN [Suspect]
     Active Substance: ROPIVACAINE HYDROCHLORIDE
     Route: 065

REACTIONS (2)
  - Wrong drug administered [Recovered/Resolved]
  - Generalised tonic-clonic seizure [Recovered/Resolved]
